FAERS Safety Report 16940594 (Version 1)
Quarter: 2019Q4

REPORT INFORMATION
  Report Type: Spontaneous
  Country: US (occurrence: US)
  Receive Date: 20191021
  Receipt Date: 20191021
  Transmission Date: 20200122
  Serious: No
  Sender: FDA-Public Use
  Company Number: US-VERTEX PHARMACEUTICALS-2019-010020

PATIENT
  Age: 23 Year
  Sex: Male

DRUGS (9)
  1. SYMDEKO [Suspect]
     Active Substance: IVACAFTOR\TEZACAFTOR
     Indication: CYSTIC FIBROSIS
     Dosage: 100MG TEZACAFTOR/150MG IVACAFTOR; 150MG IVACAFTOR, BID
     Route: 048
     Dates: start: 20180503
  2. FLONASE ALLERGY RELIEF [Concomitant]
     Active Substance: FLUTICASONE PROPIONATE
  3. CREON [Concomitant]
     Active Substance: PANCRELIPASE AMYLASE\PANCRELIPASE LIPASE\PANCRELIPASE PROTEASE
  4. IMITREX [Concomitant]
     Active Substance: SUMATRIPTAN SUCCINATE
  5. HYPERSAL [Concomitant]
     Active Substance: SODIUM CHLORIDE
  6. OMEPRAZOLE. [Concomitant]
     Active Substance: OMEPRAZOLE
  7. LEXAPRO [Concomitant]
     Active Substance: ESCITALOPRAM OXALATE
  8. SYMBICORT [Concomitant]
     Active Substance: BUDESONIDE\FORMOTEROL FUMARATE DIHYDRATE
  9. PULMOZYME [Concomitant]
     Active Substance: DORNASE ALFA

REACTIONS (1)
  - Sinusitis [Recovered/Resolved]

NARRATIVE: CASE EVENT DATE: 201910
